FAERS Safety Report 11277207 (Version 1)
Quarter: 2015Q3

REPORT INFORMATION
  Report Type: Other
  Country: DE (occurrence: DE)
  Receive Date: 20150716
  Receipt Date: 20150716
  Transmission Date: 20151125
  Serious: Yes (Other)
  Sender: FDA-Public Use
  Company Number: DE-MYLANLABS-2015M1022886

PATIENT

DRUGS (3)
  1. VALETTE 0.03 MG/2 MG [Concomitant]
     Active Substance: DIENOGEST\ETHINYL ESTRADIOL
     Indication: CONTRACEPTION
     Dosage: 1 DF, QD (DAILY DOSE: 1 DF DOSAGE FORM EVERY DAYS)
  2. CITALOPRAM [Suspect]
     Active Substance: CITALOPRAM HYDROBROMIDE
     Dosage: 20 MG, BID (DAILY DOSE: 40 MG MILLGRAM(S) EVERY DAYS)
     Route: 048
  3. MIRTAZAPIN [Suspect]
     Active Substance: MIRTAZAPINE
     Dosage: 15 MG, QD (DAILY DOSE: 15 MG MILLGRAM(S) EVERY DAYS)
     Route: 048

REACTIONS (1)
  - Pregnancy on oral contraceptive [Not Recovered/Not Resolved]
